FAERS Safety Report 15950976 (Version 1)
Quarter: 2019Q1

REPORT INFORMATION
  Report Type: Spontaneous
  Country: IT (occurrence: IT)
  Receive Date: 20190211
  Receipt Date: 20190211
  Transmission Date: 20190417
  Serious: Yes (Other)
  Sender: FDA-Public Use
  Company Number: IT-JNJFOC-20190202760

PATIENT
  Age: 12 Month
  Sex: Male

DRUGS (3)
  1. PATROL [Suspect]
     Active Substance: ACETAMINOPHEN\TRAMADOL HYDROCHLORIDE
     Indication: PRODUCT USED FOR UNKNOWN INDICATION
     Route: 065
     Dates: start: 20190201
  2. AKINETON [Suspect]
     Active Substance: BIPERIDEN HYDROCHLORIDE
     Indication: PRODUCT USED FOR UNKNOWN INDICATION
     Route: 065
     Dates: start: 20190201
  3. RISPERDAL [Suspect]
     Active Substance: RISPERIDONE
     Indication: ACCIDENTAL EXPOSURE TO PRODUCT
     Route: 048
     Dates: start: 20190201

REACTIONS (2)
  - Accidental exposure to product by child [Unknown]
  - Seizure [Unknown]

NARRATIVE: CASE EVENT DATE: 20190201
